FAERS Safety Report 4954580-8 (Version None)
Quarter: 2006Q1

REPORT INFORMATION
  Report Type: 
  Country: None (occurrence: None)
  Receive Date: 20060322
  Receipt Date: 20060316
  Transmission Date: 20060701
  Serious: Yes (Hospitalization)
  Sender: FDA-Public Use
  Company Number: STA-AE-06-019

PATIENT
  Age: 59 Year
  Sex: Female

DRUGS (3)
  1. ACYCLOVIR [Suspect]
     Indication: HERPES OPHTHALMIC
     Dosage: 750 MG PER DAY, IV
     Route: 042
  2. ACYCLOVIR [Suspect]
     Indication: HERPES ZOSTER
     Dosage: 750 MG PER DAY, IV
     Route: 042
  3. ACYCLOVIR [Suspect]
     Indication: TRIGEMINAL NERVE DISORDER
     Dosage: 750 MG PER DAY, IV
     Route: 042

REACTIONS (16)
  - AGITATION [None]
  - BLOOD CREATININE INCREASED [None]
  - BLOOD PRESSURE INCREASED [None]
  - BLOOD SODIUM DECREASED [None]
  - BLOOD UREA INCREASED [None]
  - CEREBRAL DISORDER [None]
  - DRUG TOXICITY [None]
  - ELECTROENCEPHALOGRAM ABNORMAL [None]
  - HAEMODIALYSIS [None]
  - HALLUCINATION [None]
  - HEART RATE INCREASED [None]
  - INCOHERENT [None]
  - LETHARGY [None]
  - NERVOUS SYSTEM DISORDER [None]
  - RENAL FAILURE ACUTE [None]
  - SOMNOLENCE [None]
